FAERS Safety Report 6492625-7 (Version None)
Quarter: 2009Q4

REPORT INFORMATION
  Report Type: 
  Country: None (occurrence: None)
  Receive Date: 20091214
  Receipt Date: 20091210
  Transmission Date: 20100525
  Serious: Yes (Death)
  Sender: FDA-Public Use
  Company Number: PHHY2009BR54775

PATIENT
  Sex: Female

DRUGS (2)
  1. DIOVAN [Suspect]
  2. GALVUS MET [Suspect]
     Dosage: 850/50 MG

REACTIONS (1)
  - DEATH [None]
